FAERS Safety Report 23162435 (Version 2)
Quarter: 2024Q1

REPORT INFORMATION
  Report Type: Other
  Country: FR (occurrence: FR)
  Receive Date: 20231109
  Receipt Date: 20240104
  Transmission Date: 20240410
  Serious: Yes (Hospitalization)
  Sender: FDA-Public Use
  Company Number: None

PATIENT

DRUGS (2)
  1. ZOLMITRIPTAN [Suspect]
     Active Substance: ZOLMITRIPTAN
     Indication: Migraine
     Dosage: UNK
     Route: 048
  2. TESTOSTERONE [Suspect]
     Active Substance: TESTOSTERONE
     Indication: Trans-sexualism
     Dosage: UNK
     Route: 030

REACTIONS (1)
  - Myocarditis [Recovered/Resolved]

NARRATIVE: CASE EVENT DATE: 20230611
